FAERS Safety Report 25413130 (Version 1)
Quarter: 2025Q2

REPORT INFORMATION
  Report Type: Spontaneous
  Country: US (occurrence: None)
  Receive Date: 20250606
  Receipt Date: 20250606
  Transmission Date: 20250716
  Serious: Yes (Disabling, Other)
  Sender: FDA-CTU
  Company Number: None

PATIENT
  Age: 54 Year
  Sex: Female
  Weight: 85.05 kg

DRUGS (11)
  1. ZEPBOUND [Suspect]
     Active Substance: TIRZEPATIDE
     Indication: Weight decreased
     Dates: start: 20241224, end: 20250425
  2. HYDROXYZINE [Concomitant]
     Active Substance: HYDROXYZINE HYDROCHLORIDE
  3. ATIVAN [Concomitant]
     Active Substance: LORAZEPAM
  4. PROGRESTERONE [Concomitant]
  5. ESTROGENS [Concomitant]
     Active Substance: ESTROGENS
  6. ALBUTEROL [Concomitant]
     Active Substance: ALBUTEROL
  7. QRVAR [Concomitant]
  8. VITAMIN D3 [Concomitant]
     Active Substance: CHOLECALCIFEROL
  9. BIOTIN [Concomitant]
     Active Substance: BIOTIN
  10. OMEGA-3 ACIDS [Concomitant]
     Active Substance: OMEGA-3 FATTY ACIDS
  11. B12 [Concomitant]

REACTIONS (14)
  - Panic attack [None]
  - Tremor [None]
  - Tremor [None]
  - Insomnia [None]
  - Fear of eating [None]
  - Fear [None]
  - Claustrophobia [None]
  - Hypervigilance [None]
  - Nervousness [None]
  - Body temperature fluctuation [None]
  - Flushing [None]
  - Ear discomfort [None]
  - Tinnitus [None]
  - Pruritus [None]

NARRATIVE: CASE EVENT DATE: 20250410
